FAERS Safety Report 21171190 (Version 2)
Quarter: 2022Q3

REPORT INFORMATION
  Report Type: Other
  Country: US (occurrence: US)
  Receive Date: 20220804
  Receipt Date: 20220826
  Transmission Date: 20221026
  Serious: Yes (Hospitalization, Other)
  Sender: FDA-Public Use
  Company Number: US-INTERCEPT-PM2022001434

PATIENT
  Age: 89 Year
  Sex: Female
  Weight: 66.8 kg

DRUGS (11)
  1. OCALIVA [Suspect]
     Active Substance: OBETICHOLIC ACID
     Indication: Primary biliary cholangitis
     Dosage: 5 MILLIGRAM, QD
     Route: 048
     Dates: start: 20210213
  2. URSODIOL [Concomitant]
     Active Substance: URSODIOL
     Dosage: 300 MILLIGRAM, TID
     Route: 048
     Dates: start: 20220502
  3. PROLIA [Concomitant]
     Active Substance: DENOSUMAB
  4. POTASSIUM [Concomitant]
     Active Substance: POTASSIUM
  5. PROCARDIA [Concomitant]
     Active Substance: NIFEDIPINE
  6. LOSARTAN POTASSIUM [Concomitant]
     Active Substance: LOSARTAN POTASSIUM
  7. LEVOTHYROXINE [Concomitant]
     Active Substance: LEVOTHYROXINE
     Dosage: 100 MICROGRAM, QD
     Route: 048
     Dates: start: 20220724
  8. SPIRONOLACTONE [Concomitant]
     Active Substance: SPIRONOLACTONE
  9. LASIX [Concomitant]
     Active Substance: FUROSEMIDE
  10. TYLENOL [Concomitant]
     Active Substance: ACETAMINOPHEN
     Dosage: 650 MILLIGRAM, BID
     Route: 048
  11. CEFUROXIME [Concomitant]
     Active Substance: CEFUROXIME
     Dosage: 250 MILLIGRAM, BID
     Route: 048
     Dates: start: 20220728

REACTIONS (2)
  - Acute myocardial infarction [Recovering/Resolving]
  - Percutaneous coronary intervention [Recovered/Resolved]

NARRATIVE: CASE EVENT DATE: 20220719
